FAERS Safety Report 5974305-7 (Version None)
Quarter: 2008Q4

REPORT INFORMATION
  Report Type: 
  Country: None (occurrence: None)
  Receive Date: 20081201
  Receipt Date: 20081126
  Transmission Date: 20090506
  Serious: Yes (Life-Threatening, Hospitalization, Congenital Anomaly, Other)
  Sender: FDA-Public Use
  Company Number: US-PFIZER INC-2008050217

PATIENT
  Sex: Male
  Weight: 4.1 kg

DRUGS (6)
  1. ZOLOFT [Suspect]
     Indication: PREMENSTRUAL SYNDROME
     Route: 064
  2. ZOLOFT [Suspect]
     Indication: DEPRESSION
  3. ZOLOFT [Suspect]
     Indication: ANXIETY
  4. AUGMENTIN XR [Concomitant]
     Indication: ACUTE TONSILLITIS
     Route: 064
     Dates: start: 20060901
  5. AMBIEN [Concomitant]
  6. HYDROCODONE BITARTRATE [Concomitant]

REACTIONS (8)
  - ATRIAL SEPTAL DEFECT [None]
  - COLLAPSE OF LUNG [None]
  - DRUG EXPOSURE DURING PREGNANCY [None]
  - EAR INFECTION [None]
  - OTITIS MEDIA ACUTE [None]
  - POST PROCEDURAL COMPLICATION [None]
  - PULMONARY VALVE STENOSIS [None]
  - TRANSPOSITION OF THE GREAT VESSELS [None]
